FAERS Safety Report 6626764-4 (Version None)
Quarter: 2010Q1

REPORT INFORMATION
  Report Type: 
  Country: None (occurrence: None)
  Receive Date: 20100311
  Receipt Date: 20100302
  Transmission Date: 20100710
  Serious: Yes (Other)
  Sender: FDA-Public Use
  Company Number: US-BIOGENIDEC-2010BI007772

PATIENT
  Sex: Female

DRUGS (1)
  1. TYSABRI [Suspect]
     Indication: MULTIPLE SCLEROSIS
     Route: 042
     Dates: start: 20080424, end: 20100118

REACTIONS (3)
  - CEREBROVASCULAR ACCIDENT [None]
  - DEPRESSED MOOD [None]
  - VITAMIN D DEFICIENCY [None]
